FAERS Safety Report 13962393 (Version 2)
Quarter: 2018Q2

REPORT INFORMATION
  Report Type: Spontaneous
  Country: GB (occurrence: GB)
  Receive Date: 20170913
  Receipt Date: 20180628
  Transmission Date: 20180711
  Serious: Yes (Other)
  Sender: FDA-Public Use
  Company Number: GB-MYLANLABS-2017M1055993

PATIENT
  Age: 32 Year
  Sex: Female
  Weight: 66 kg

DRUGS (4)
  1. ARAVA [Suspect]
     Active Substance: LEFLUNOMIDE
     Indication: RHEUMATOID ARTHRITIS
     Route: 048
     Dates: start: 2013
  2. IBUPROFEN. [Suspect]
     Active Substance: IBUPROFEN
     Indication: PAIN
     Route: 048
  3. FERROUS SULFATE. [Suspect]
     Active Substance: FERROUS SULFATE
     Indication: ANAEMIA
     Route: 048
  4. PARACETAMOL [Suspect]
     Active Substance: ACETAMINOPHEN
     Indication: PAIN
     Route: 048

REACTIONS (2)
  - Exposure during pregnancy [Recovered/Resolved]
  - Foetal death [Recovered/Resolved]

NARRATIVE: CASE EVENT DATE: 20170123
